FAERS Safety Report 21919826 (Version 2)
Quarter: 2023Q1

REPORT INFORMATION
  Report Type: Spontaneous
  Country: CA (occurrence: CA)
  Receive Date: 20230127
  Receipt Date: 20230309
  Transmission Date: 20230417
  Serious: Yes (Other)
  Sender: FDA-Public Use
  Company Number: CA-PFIZER INC-202300026560

PATIENT
  Age: 16 Year
  Sex: Female

DRUGS (4)
  1. GENOTROPIN [Suspect]
     Active Substance: SOMATROPIN
     Indication: Short stature
     Dosage: 1400 UG, 6X/WEEK
     Route: 058
     Dates: start: 2019, end: 2021
  2. GENOTROPIN [Suspect]
     Active Substance: SOMATROPIN
     Dosage: 1600 UG, 6X/WEEK
     Route: 058
     Dates: start: 2021, end: 2022
  3. GENOTROPIN [Suspect]
     Active Substance: SOMATROPIN
     Dosage: 1400 UG, 6X/WEEK
     Route: 058
     Dates: start: 2022
  4. ESTRADIOL [Concomitant]
     Active Substance: ESTRADIOL
     Dosage: 0.5 MG, 1X/DAY (1 DF)

REACTIONS (3)
  - Brain neoplasm [Unknown]
  - Seizure [Unknown]
  - Blood test abnormal [Unknown]
